FAERS Safety Report 4881139-3 (Version None)
Quarter: 2005Q4

REPORT INFORMATION
  Report Type: 
  Country: None (occurrence: None)
  Receive Date: 20051223
  Receipt Date: 20050915
  Transmission Date: 20060501
  Serious: No
  Sender: FDA-Public Use
  Company Number: 05P-163-0311114-00

PATIENT
  Age: 76 Year
  Sex: Female
  Weight: 50.8029 kg

DRUGS (9)
  1. HUMIRA [Suspect]
     Indication: RHEUMATOID ARTHRITIS
     Dosage: 40 MG, 1 IN 2 WK, SUBCUTANEOUS
     Route: 058
     Dates: start: 20050627, end: 20050725
  2. HUMIRA [Suspect]
     Indication: RHEUMATOID ARTHRITIS
     Dosage: 40 MG, 1 IN 2 WK, SUBCUTANEOUS
     Route: 058
     Dates: start: 20050914
  3. LEVOTHYROXINE SODIUM [Concomitant]
  4. POLYSACCHARIDE-IRON COMPLEX [Concomitant]
  5. ESOMEPRAZOLE [Concomitant]
  6. LOTREL [Concomitant]
  7. HYDROCHLOROTHIAZIDE [Concomitant]
  8. VITAMINS [Concomitant]
  9. TRAZODONE [Concomitant]

REACTIONS (1)
  - DRY SOCKET [None]
